FAERS Safety Report 24564745 (Version 1)
Quarter: 2024Q4

REPORT INFORMATION
  Report Type: Report from Study
  Country: CA (occurrence: CA)
  Receive Date: 20241030
  Receipt Date: 20241030
  Transmission Date: 20250115
  Serious: Yes (Death, Other)
  Sender: CSL BEHRING
  Company Number: CA-BEH-2024183339

PATIENT
  Age: 73 Year
  Sex: Male
  Weight: 35.374 kg

DRUGS (22)
  1. HIZENTRA [Suspect]
     Active Substance: HUMAN IMMUNOGLOBULIN G
     Indication: Primary immunodeficiency syndrome
     Dosage: 8 G, QW
     Route: 065
     Dates: start: 20211022
  2. PREDNISONE [Concomitant]
     Active Substance: PREDNISONE
  3. DUTASTERIDE [Concomitant]
     Active Substance: DUTASTERIDE
  4. TAMSULOSIN [Concomitant]
     Active Substance: TAMSULOSIN
  5. ALENDRONATE [Concomitant]
     Active Substance: ALENDRONATE SODIUM
  6. CALCIUM [Concomitant]
     Active Substance: CALCIUM
  7. PANTOPRAZOLE [Concomitant]
     Active Substance: PANTOPRAZOLE
  8. NADOLOL [Concomitant]
     Active Substance: NADOLOL
  9. SULFATRIM [Concomitant]
     Active Substance: SULFAMETHOXAZOLE\TRIMETHOPRIM
  10. VITAMIN C [Concomitant]
     Active Substance: ASCORBIC ACID
  11. FER IN SOL [Concomitant]
  12. RAMIPRIL [Concomitant]
     Active Substance: RAMIPRIL
  13. SPIROTON [Concomitant]
  14. FUROSEMIDE [Concomitant]
     Active Substance: FUROSEMIDE
  15. LEVETIRACETAM [Concomitant]
     Active Substance: LEVETIRACETAM
  16. ASPIRIN [Concomitant]
     Active Substance: ASPIRIN
  17. ATORVASTATIN [Concomitant]
     Active Substance: ATORVASTATIN
  18. CHOLECALCIFEROL [Concomitant]
     Active Substance: CHOLECALCIFEROL
  19. JANUMET XR [Concomitant]
     Active Substance: METFORMIN HYDROCHLORIDE\SITAGLIPTIN PHOSPHATE
  20. INSULIN NOS [Concomitant]
     Active Substance: INSULIN NOS
  21. Emolax [Concomitant]
  22. ANAKINRA [Concomitant]
     Active Substance: ANAKINRA

REACTIONS (1)
  - Death [Fatal]

NARRATIVE: CASE EVENT DATE: 20231220
